FAERS Safety Report 7040223-9 (Version None)
Quarter: 2010Q4

REPORT INFORMATION
  Report Type: 
  Country: None (occurrence: None)
  Receive Date: 20101012
  Receipt Date: 20101005
  Transmission Date: 20110411
  Serious: Yes (Other)
  Sender: FDA-Public Use
  Company Number: US-AMGEN-QUU443186

PATIENT
  Sex: Female

DRUGS (3)
  1. EPOGEN [Suspect]
     Indication: PRODUCT USED FOR UNKNOWN INDICATION
     Dates: start: 20091101, end: 20100701
  2. UNSPECIFIED MEDICATION [Concomitant]
  3. PEGASYS [Concomitant]

REACTIONS (4)
  - HYPERSENSITIVITY [None]
  - PRURITUS GENERALISED [None]
  - SKIN DISORDER [None]
  - VASCULAR SKIN DISORDER [None]
